FAERS Safety Report 19460437 (Version 1)
Quarter: 2021Q2

REPORT INFORMATION
  Report Type: Spontaneous
  Country: CA (occurrence: CA)
  Receive Date: 20210625
  Receipt Date: 20210625
  Transmission Date: 20210717
  Serious: Yes (Other)
  Sender: FDA-Public Use
  Company Number: CA-AUROBINDO-AUR-APL-2021-026340

PATIENT
  Age: 65 Year
  Sex: Female

DRUGS (3)
  1. BENLYSTA [Suspect]
     Active Substance: BELIMUMAB
     Indication: SYSTEMIC LUPUS ERYTHEMATOSUS
     Dosage: UNK
     Route: 065
  2. PAROXETINE. [Suspect]
     Active Substance: PAROXETINE
     Indication: DEPRESSION
     Dosage: UNK
     Route: 065
  3. PAROXETINE. [Suspect]
     Active Substance: PAROXETINE
     Indication: ANXIETY
     Dosage: UNK
     Route: 065

REACTIONS (9)
  - Arthralgia [Unknown]
  - Fracture [Unknown]
  - Fall [Unknown]
  - Stress [Unknown]
  - Product use in unapproved indication [Unknown]
  - Malaise [Unknown]
  - Systemic lupus erythematosus [Unknown]
  - Hypoaesthesia [Unknown]
  - Therapeutic product effect incomplete [Unknown]
